FAERS Safety Report 9652948 (Version 3)
Quarter: 2013Q4

REPORT INFORMATION
  Report Type: Spontaneous
  Country: US (occurrence: US)
  Receive Date: 20131029
  Receipt Date: 20131209
  Transmission Date: 20140711
  Serious: Yes (Death, Hospitalization, Disabling, Other)
  Sender: FDA-Public Use
  Company Number: US-CELGENEUS-163-21880-13082147

PATIENT
  Age: 83 Year
  Sex: Female
  Weight: 66.28 kg

DRUGS (20)
  1. REVLIMID [Suspect]
     Indication: PLASMA CELL MYELOMA
     Dosage: 5 MILLIGRAM
     Route: 048
     Dates: start: 20130619, end: 20130702
  2. REVLIMID [Suspect]
     Dosage: 5 MILLIGRAM
     Route: 048
     Dates: start: 201307, end: 20130814
  3. REVLIMID [Suspect]
     Dosage: 5 MILLIGRAM
     Route: 048
     Dates: start: 20130814, end: 20130828
  4. VELCADE [Concomitant]
     Indication: CHEMOTHERAPY
     Route: 065
     Dates: end: 20130911
  5. VELCADE [Concomitant]
     Indication: ANAEMIA
  6. ARANESP [Concomitant]
     Indication: ANAEMIA
     Route: 065
  7. ARANESP [Concomitant]
     Indication: CHEMOTHERAPY
  8. ACYCLOVIR [Concomitant]
     Indication: VIRAL INFECTION
     Route: 065
  9. ACYCLOVIR [Concomitant]
     Indication: ANTIVIRAL PROPHYLAXIS
  10. ISOSORBIDE [Concomitant]
     Indication: HYPERTENSION
     Route: 065
  11. NORTRIPTYLINE [Concomitant]
     Indication: DEPRESSION
     Route: 065
  12. SIMVASTATIN [Concomitant]
     Indication: HYPERLIPIDAEMIA
     Route: 065
  13. COREG [Concomitant]
     Indication: HYPERTENSION
     Route: 065
  14. MULTIVITAMINS [Concomitant]
     Indication: VITAMIN SUPPLEMENTATION
     Route: 065
  15. MULTIVITAMINS [Concomitant]
     Indication: MINERAL SUPPLEMENTATION
  16. VITAMIN D3 [Concomitant]
     Indication: VITAMIN SUPPLEMENTATION
     Route: 065
  17. VITAMIN D3 [Concomitant]
     Indication: MINERAL SUPPLEMENTATION
  18. CALCITRIOL [Concomitant]
     Indication: PRODUCT USED FOR UNKNOWN INDICATION
     Route: 065
  19. CHOLECALCIFEROL [Concomitant]
     Indication: PRODUCT USED FOR UNKNOWN INDICATION
     Route: 065
  20. OMEPRAZOLE [Concomitant]
     Indication: PRODUCT USED FOR UNKNOWN INDICATION
     Route: 065

REACTIONS (6)
  - Plasma cell myeloma [Fatal]
  - Bone marrow failure [Recovered/Resolved]
  - Abdominal pain [Recovering/Resolving]
  - Renal failure [Fatal]
  - Cerebrovascular accident [Not Recovered/Not Resolved]
  - Diarrhoea [Not Recovered/Not Resolved]
